FAERS Safety Report 13592355 (Version 2)
Quarter: 2017Q3

REPORT INFORMATION
  Report Type: Report from Study
  Country: CA (occurrence: CA)
  Receive Date: 20170530
  Receipt Date: 20170701
  Transmission Date: 20171127
  Serious: Yes (Death)
  Sender: FDA-Public Use
  Company Number: CA-HLSUS-2017-CA-000520

PATIENT
  Age: 33 Year
  Sex: Female

DRUGS (6)
  1. COGENTIN [Concomitant]
     Active Substance: BENZTROPINE MESYLATE
     Dosage: 1MG DIE
     Route: 048
  2. CLOZARIL [Suspect]
     Active Substance: CLOZAPINE
     Route: 048
     Dates: start: 20140827
  3. ABILIFY MAINTENA [Concomitant]
     Active Substance: ARIPIPRAZOLE
     Dosage: 400MG Q 28 DAYS
     Route: 030
  4. DEPO-PROVERA [Concomitant]
     Active Substance: MEDROXYPROGESTERONE ACETATE
     Dosage: 150MG Q 3 MONTHS
     Route: 030
  5. LITHIUM. [Concomitant]
     Active Substance: LITHIUM
     Dosage: 1200MG DIE
     Route: 048
  6. VENTOLIN [Concomitant]
     Active Substance: ALBUTEROL SULFATE
     Dosage: PRN

REACTIONS (3)
  - Death [Fatal]
  - Obesity [Unknown]
  - Asthma [Unknown]

NARRATIVE: CASE EVENT DATE: 20170516
